FAERS Safety Report 23180735 (Version 1)
Quarter: 2023Q4

REPORT INFORMATION
  Report Type: Spontaneous
  Country: TW (occurrence: TW)
  Receive Date: 20231114
  Receipt Date: 20231114
  Transmission Date: 20240110
  Serious: Yes (Death)
  Sender: FDA-Public Use
  Company Number: TW-DSJP-DSJ-2023-146650

PATIENT
  Age: 81 Year
  Sex: Male

DRUGS (1)
  1. TRASTUZUMAB DERUXTECAN [Suspect]
     Active Substance: TRASTUZUMAB DERUXTECAN
     Indication: Breast cancer
     Dosage: 2 DF, ONCE EVERY 3 WK (2 VIAL (100 MG))
     Route: 042
     Dates: start: 20230828

REACTIONS (1)
  - Death [Fatal]

NARRATIVE: CASE EVENT DATE: 20231031
